FAERS Safety Report 13003844 (Version 2)
Quarter: 2016Q4

REPORT INFORMATION
  Report Type: Spontaneous
  Country: US (occurrence: US)
  Receive Date: 20161206
  Receipt Date: 20161213
  Transmission Date: 20170207
  Serious: Yes (Other)
  Sender: FDA-Public Use
  Company Number: US-LUNDBECK-DKLU2023398

PATIENT
  Age: 66 Year
  Sex: Male

DRUGS (2)
  1. NORTHERA [Suspect]
     Active Substance: DROXIDOPA
     Indication: PARKINSON^S DISEASE
     Route: 048
     Dates: start: 20161122
  2. NORTHERA [Suspect]
     Active Substance: DROXIDOPA
     Indication: LABILE BLOOD PRESSURE

REACTIONS (4)
  - Urinary tract infection [Unknown]
  - Loss of consciousness [Recovered/Resolved]
  - Device occlusion [Unknown]
  - Fall [Unknown]

NARRATIVE: CASE EVENT DATE: 201611
